FAERS Safety Report 8105240-6 (Version None)
Quarter: 2012Q1

REPORT INFORMATION
  Report Type: 
  Country: None (occurrence: None)
  Receive Date: 20120201
  Receipt Date: 20120125
  Transmission Date: 20120608
  Serious: No
  Sender: FDA-Public Use
  Company Number: US-B.I. PHARMACEUTICALS,INC./RIDGEFIELD-2011-BP-25320BP

PATIENT
  Sex: Female

DRUGS (7)
  1. CITALOPRAM HYDROBROMIDE [Concomitant]
     Dosage: 20 MG
  2. METOPROLOL TARTRATE [Concomitant]
     Indication: HEART RATE IRREGULAR
     Dosage: 50 MG
     Route: 048
  3. OMEPRAZOLE [Concomitant]
     Dosage: 20 MG
  4. HYDROCODONE BITARTRATE [Concomitant]
     Indication: BACK PAIN
  5. PRADAXA [Suspect]
     Indication: THROMBOSIS PROPHYLAXIS
     Dosage: 300 MG
     Route: 048
     Dates: start: 20110831
  6. PRADAXA [Suspect]
     Indication: ANTICOAGULANT THERAPY
     Dosage: 150 MG
     Route: 048
  7. LORAZEPAM [Concomitant]
     Dosage: 1 MG

REACTIONS (6)
  - FATIGUE [None]
  - CONTUSION [None]
  - BACK PAIN [None]
  - ARTHRALGIA [None]
  - BACK DISORDER [None]
  - PAIN IN EXTREMITY [None]
